FAERS Safety Report 20731020 (Version 1)
Quarter: 2022Q2

REPORT INFORMATION
  Report Type: Spontaneous
  Country: GB (occurrence: GB)
  Receive Date: 20220420
  Receipt Date: 20220420
  Transmission Date: 20220721
  Serious: Yes (Other)
  Sender: FDA-Public Use
  Company Number: None

PATIENT
  Age: 51 Year
  Sex: Male
  Weight: 112 kg

DRUGS (13)
  1. DOXYCYCLINE [Suspect]
     Active Substance: DOXYCYCLINE
     Indication: Product used for unknown indication
     Dosage: 100 MILLIGRAM
     Dates: start: 20220411
  2. AMOXICILLIN [Concomitant]
     Active Substance: AMOXICILLIN
     Dosage: 1 DOSAGE FORM, TID
     Dates: start: 20220411
  3. BISOPROLOL [Concomitant]
     Active Substance: BISOPROLOL
     Dosage: 1 DOSAGE FORM, QD
     Dates: start: 20210816
  4. CHLORHEXIDINE GLUCONATE [Concomitant]
     Active Substance: CHLORHEXIDINE GLUCONATE
     Dosage: 10 MILLILITER, BID
     Dates: start: 20220328, end: 20220407
  5. CHOLECALCIFEROL [Concomitant]
     Active Substance: CHOLECALCIFEROL
     Dosage: 1 DOSAGE FORM, BIWEEKLY (TWICE A WEEK)
     Dates: start: 20220407
  6. DOXYCYCLINE [Concomitant]
     Active Substance: DOXYCYCLINE
     Dosage: 2 DOSAGE FORM, QD
     Dates: start: 20220207, end: 20220212
  7. HYDROCORTISONE [Concomitant]
     Active Substance: HYDROCORTISONE
     Dosage: 1 DOSAGE FORM, QID
     Dates: start: 20220328, end: 20220402
  8. HYALURONATE SODIUM [Concomitant]
     Active Substance: HYALURONATE SODIUM
     Dosage: 1 DOSAGE FORM, QID,FOR ONE MONTH
     Dates: start: 20210816
  9. KENALOG [Concomitant]
     Active Substance: TRIAMCINOLONE ACETONIDE
     Dosage: UNK, USE AS DIRECTED
     Dates: start: 20220223, end: 20220224
  10. LANSOPRAZOLE [Concomitant]
     Active Substance: LANSOPRAZOLE
     Dosage: 1 DOSAGE FORM, TAKE ONE AS ADVISED FOR 4 WEEKS THEN WHEN NEEDED
     Dates: start: 20220407
  11. LIDOCAINE [Concomitant]
     Active Substance: LIDOCAINE
     Dosage: UNK, USE AS DIRECTED
     Dates: start: 20220223, end: 20220224
  12. ACETAMINOPHEN [Concomitant]
     Active Substance: ACETAMINOPHEN
     Dosage: 2 DOSAGE FORM, QID, AS NEEDED
     Dates: start: 20220407
  13. CARBOMER [Concomitant]
     Active Substance: CARBOMER
     Dosage: UNK, INSTIL AT NIGHT FOR ONE MOUTH.USE IN BOTH EYES ...
     Dates: start: 20210816

REACTIONS (3)
  - Anuria [Recovered/Resolved]
  - Dysuria [Unknown]
  - Nausea [Unknown]

NARRATIVE: CASE EVENT DATE: 20220411
